FAERS Safety Report 8592659-2 (Version None)
Quarter: 2012Q3

REPORT INFORMATION
  Report Type: 
  Country: None (occurrence: None)
  Receive Date: 20120814
  Receipt Date: 20120801
  Transmission Date: 20120928
  Serious: No
  Sender: FDA-Public Use
  Company Number: US-ASTRAZENECA-2012SE54521

PATIENT
  Age: 58 Year
  Sex: Male
  Weight: 80.7 kg

DRUGS (2)
  1. SYMBICORT [Suspect]
     Indication: ASTHMA
     Dosage: 320 MCG, BID
     Route: 055
     Dates: start: 20110101
  2. PROAIR HFA [Concomitant]
     Indication: ASTHMA

REACTIONS (5)
  - SINUS CONGESTION [None]
  - HEADACHE [None]
  - WHEEZING [None]
  - DRUG EFFECT DECREASED [None]
  - LUNG DISORDER [None]
